FAERS Safety Report 6917356-8 (Version None)
Quarter: 2010Q3

REPORT INFORMATION
  Report Type: 
  Country: None (occurrence: None)
  Receive Date: 20100810
  Receipt Date: 20100806
  Transmission Date: 20110219
  Serious: Yes (Life-Threatening, Hospitalization)
  Sender: FDA-Public Use
  Company Number: BR-ELI_LILLY_AND_COMPANY-BR201003006508

PATIENT
  Sex: Female
  Weight: 57.5 kg

DRUGS (6)
  1. GEMCITABINE HCL [Suspect]
     Indication: BREAST CANCER METASTATIC
     Dosage: 1250 MG/M2, OTHER
     Route: 042
     Dates: start: 20100211
  2. PACLITAXEL [Suspect]
     Indication: BREAST CANCER METASTATIC
     Dosage: 175 MG/M2, OTHER
     Route: 042
     Dates: start: 20100211
  3. DIMORF [Concomitant]
     Dosage: UNK, UNKNOWN
     Route: 065
     Dates: start: 20100221
  4. DIPYRONE [Concomitant]
     Dosage: UNK, UNKNOWN
     Route: 065
     Dates: start: 20100209
  5. SERTRALINE HYDROCHLORIDE [Concomitant]
     Dosage: UNK, UNKNOWN
     Route: 065
     Dates: start: 20100311, end: 20100311
  6. RANITIDINE [Concomitant]
     Dosage: UNK, UNKNOWN
     Route: 065
     Dates: start: 20100211

REACTIONS (2)
  - PNEUMONIA [None]
  - SEPTIC SHOCK [None]
